FAERS Safety Report 8484623-9 (Version None)
Quarter: 2012Q3

REPORT INFORMATION
  Report Type: 
  Country: None (occurrence: None)
  Receive Date: 20120703
  Receipt Date: 20120522
  Transmission Date: 20120928
  Serious: No
  Sender: FDA-Public Use
  Company Number: US-TEVA-339648USA

PATIENT
  Sex: Male
  Weight: 72.64 kg

DRUGS (7)
  1. INSULIN GLULISINE [Concomitant]
     Indication: TYPE 1 DIABETES MELLITUS
  2. TRUVADA [Concomitant]
     Indication: PAPILLOMA VIRAL INFECTION
  3. ISENTRESS [Concomitant]
     Indication: PAPILLOMA VIRAL INFECTION
  4. DULOXETINE HYDROCHLORIDE [Concomitant]
     Indication: DEPRESSION
  5. NUVIGIL [Suspect]
     Indication: SLEEP APNOEA SYNDROME
     Route: 048
     Dates: start: 20110101
  6. ATORVASTATIN CALCIUM [Concomitant]
     Indication: BLOOD CHOLESTEROL
  7. LOSARTAN POTASSIUM [Concomitant]
     Indication: RENAL DISORDER

REACTIONS (1)
  - DRUG INEFFECTIVE [None]
